FAERS Safety Report 6834436-6 (Version None)
Quarter: 2010Q3

REPORT INFORMATION
  Report Type: 
  Country: None (occurrence: None)
  Receive Date: 20100712
  Receipt Date: 20070626
  Transmission Date: 20110219
  Serious: No
  Sender: FDA-Public Use
  Company Number: US-PFIZER INC-2007023341

PATIENT
  Sex: Female
  Weight: 58.97 kg

DRUGS (3)
  1. CHANTIX [Suspect]
     Indication: SMOKING CESSATION THERAPY
     Route: 048
     Dates: start: 20070201, end: 20070321
  2. AMOXICILLIN [Concomitant]
     Indication: NASOPHARYNGITIS
     Route: 048
     Dates: end: 20070301
  3. MOTRIN [Concomitant]
     Indication: PYREXIA
     Route: 048
     Dates: end: 20070301

REACTIONS (10)
  - ANXIETY [None]
  - APATHY [None]
  - ASTHENIA [None]
  - DEPRESSION [None]
  - DYSGEUSIA [None]
  - FATIGUE [None]
  - INCREASED UPPER AIRWAY SECRETION [None]
  - SCREAMING [None]
  - SOMNOLENCE [None]
  - WEIGHT INCREASED [None]
